FAERS Safety Report 5432109-8 (Version None)
Quarter: 2007Q3

REPORT INFORMATION
  Report Type: 
  Country: None (occurrence: None)
  Receive Date: 20070830
  Receipt Date: 20070827
  Transmission Date: 20080115
  Serious: Yes (Other)
  Sender: FDA-Public Use
  Company Number: ES-ROXANE LABORATORIES, INC-2007-BP-19903RO

PATIENT
  Age: 85 Year
  Sex: Female

DRUGS (7)
  1. PAROXETINE [Suspect]
     Indication: DEPRESSION
     Route: 048
  2. TRAMADOL HCL [Suspect]
     Indication: OSTEOARTHRITIS
  3. TRAMADOL HCL [Suspect]
  4. ACENOCOUMAROL [Concomitant]
  5. ASPIRIN [Concomitant]
  6. PARACETOMOL [Concomitant]
  7. OMEPRAZOLE [Concomitant]

REACTIONS (15)
  - AKATHISIA [None]
  - ANXIETY [None]
  - CONFUSIONAL STATE [None]
  - COORDINATION ABNORMAL [None]
  - DISORIENTATION [None]
  - DRUG INTERACTION [None]
  - HALLUCINATION, VISUAL [None]
  - HYPERTENSION [None]
  - INSOMNIA [None]
  - IRRITABILITY [None]
  - MUSCLE RIGIDITY [None]
  - MYDRIASIS [None]
  - SEROTONIN SYNDROME [None]
  - TACHYCARDIA [None]
  - TREMOR [None]
